FAERS Safety Report 15262598 (Version 1)
Quarter: 2018Q3

REPORT INFORMATION
  Report Type: Spontaneous
  Country: LS (occurrence: LS)
  Receive Date: 20180809
  Receipt Date: 20180809
  Transmission Date: 20181010
  Serious: Yes (Hospitalization)
  Sender: FDA-Public Use
  Company Number: PHHY2018LS064742

PATIENT
  Age: 39 Year
  Sex: Female
  Weight: 72 kg

DRUGS (16)
  1. LINEZOLID. [Suspect]
     Active Substance: LINEZOLID
     Indication: TUBERCULOSIS
     Dosage: 300 MG, QD
     Route: 048
     Dates: start: 20180126
  2. TENOFOVIR [Concomitant]
     Active Substance: TENOFOVIR
     Indication: HIV INFECTION
     Dosage: UNK
     Route: 065
  3. CYCLOSERINE. [Suspect]
     Active Substance: CYCLOSERINE
     Indication: TUBERCULOSIS
     Dosage: UNK
     Route: 065
     Dates: start: 20180326, end: 20180603
  4. NEVIRAPINE. [Concomitant]
     Active Substance: NEVIRAPINE
     Indication: HIV INFECTION
     Dosage: UNK
     Route: 065
  5. CLOFAZIMINE [Suspect]
     Active Substance: CLOFAZIMINE
     Indication: TUBERCULOSIS
     Dosage: 100 MG, QD
     Route: 048
     Dates: start: 20180126
  6. CLOFAZIMINE [Suspect]
     Active Substance: CLOFAZIMINE
     Dosage: UNK
     Route: 065
     Dates: start: 20180222
  7. BEDAQUILINE [Suspect]
     Active Substance: BEDAQUILINE
     Indication: TUBERCULOSIS
     Dosage: 200 MG, TIW
     Route: 048
     Dates: start: 20180126
  8. LAMIVUDINE. [Concomitant]
     Active Substance: LAMIVUDINE
     Indication: HIV INFECTION
     Dosage: UNK
     Route: 065
  9. PIRAZINAMIDA [Suspect]
     Active Substance: PYRAZINAMIDE
     Dosage: 1600 MG, UNK
     Route: 048
  10. PIRAZINAMIDA [Suspect]
     Active Substance: PYRAZINAMIDE
     Dosage: UNK
     Route: 065
     Dates: start: 20180222
  11. DELAMANID [Suspect]
     Active Substance: DELAMANID
     Dosage: UNK
     Route: 065
     Dates: start: 20180222
  12. LINEZOLID. [Suspect]
     Active Substance: LINEZOLID
     Dosage: UNK
     Route: 065
     Dates: start: 20180222
  13. BEDAQUILINE [Suspect]
     Active Substance: BEDAQUILINE
     Dosage: UNK
     Route: 065
     Dates: start: 20180222
  14. COTRIMOXAZOLE [Concomitant]
     Active Substance: SULFAMETHOXAZOLE\TRIMETHOPRIM
     Indication: PRODUCT USED FOR UNKNOWN INDICATION
     Dosage: UNK
     Route: 065
  15. PIRAZINAMIDA [Suspect]
     Active Substance: PYRAZINAMIDE
     Indication: TUBERCULOSIS
     Dosage: UNK
     Route: 065
     Dates: start: 20180117
  16. DELAMANID [Suspect]
     Active Substance: DELAMANID
     Indication: TUBERCULOSIS
     Dosage: 200 MG, QD
     Route: 048
     Dates: start: 20180216

REACTIONS (14)
  - Affect lability [Unknown]
  - Blood creatinine increased [Unknown]
  - Platelet count increased [Unknown]
  - Psychotic disorder [Unknown]
  - Disturbance in social behaviour [Unknown]
  - Psychotic disorder [Recovered/Resolved]
  - Alanine aminotransferase increased [Unknown]
  - White blood cell count decreased [Unknown]
  - Gamma-glutamyltransferase increased [Unknown]
  - Hallucination, auditory [Recovered/Resolved]
  - Hypothyroidism [Unknown]
  - Aggression [Unknown]
  - Aspartate aminotransferase increased [Unknown]
  - Grandiosity [Unknown]

NARRATIVE: CASE EVENT DATE: 20180705
